FAERS Safety Report 5475996-X (Version None)
Quarter: 2007Q4

REPORT INFORMATION
  Report Type: 
  Country: None (occurrence: None)
  Receive Date: 20071003
  Receipt Date: 20070921
  Transmission Date: 20080405
  Serious: Yes (Disabling)
  Sender: FDA-Public Use
  Company Number: FR-ROCHE-520365

PATIENT
  Age: 68 Year
  Sex: Male

DRUGS (5)
  1. RIVOTRIL [Suspect]
     Indication: PAIN
     Route: 065
     Dates: start: 19860101
  2. ACEBUTOLOL [Suspect]
     Indication: INFARCTION
     Route: 048
     Dates: start: 20030101
  3. AMLOR [Suspect]
     Indication: INFARCTION
     Dosage: DOSAGE REGIMEN REPORTED: 1 DOSE DAILY.
     Route: 048
     Dates: start: 20030101
  4. ASPEGIC 325 [Suspect]
     Indication: INFARCTION
     Dosage: DOSE REGIMEN REPORTED: 1 DOSE DAILY.
     Route: 048
     Dates: start: 20030101
  5. TAHOR [Suspect]
     Indication: INFARCTION
     Dosage: DOSAGE REGIMEN REPORTED: 1 DOSE DAILY.
     Route: 048
     Dates: start: 20030101

REACTIONS (1)
  - TENDON RUPTURE [None]
